FAERS Safety Report 5660792-0 (Version None)
Quarter: 2008Q1

REPORT INFORMATION
  Report Type: 
  Country: None (occurrence: None)
  Receive Date: 20080311
  Receipt Date: 20080305
  Transmission Date: 20080703
  Serious: Yes (Hospitalization)
  Sender: FDA-Public Use
  Company Number: US-BAYER-200714334BWH

PATIENT
  Age: 56 Year
  Sex: Female
  Weight: 82 kg

DRUGS (5)
  1. CIPRO [Suspect]
     Indication: DRUG USE FOR UNKNOWN INDICATION
  2. BETASERON [Suspect]
     Route: 058
     Dates: start: 20010101
  3. BETASERON [Suspect]
     Route: 058
     Dates: start: 20050901
  4. TYLENOL (CAPLET) [Concomitant]
  5. VITAMINS [Concomitant]

REACTIONS (1)
  - DRUG HYPERSENSITIVITY [None]
